FAERS Safety Report 23452239 (Version 1)
Quarter: 2024Q1

REPORT INFORMATION
  Report Type: Spontaneous
  Country: US (occurrence: US)
  Receive Date: 20240129
  Receipt Date: 20240129
  Transmission Date: 20240409
  Serious: Yes (Other)
  Sender: FDA-Public Use
  Company Number: US-BAYER-2024A013632

PATIENT
  Sex: Male

DRUGS (1)
  1. ALKA-SELTZER HEARTBURN RELIEFCHEWS [Suspect]
     Active Substance: CALCIUM CARBONATE
     Dosage: 18 TABLETS DAILY
     Route: 048

REACTIONS (2)
  - Drug dependence [Unknown]
  - Incorrect dose administered [Unknown]
